FAERS Safety Report 7575414-1 (Version None)
Quarter: 2011Q2

REPORT INFORMATION
  Report Type: 
  Country: None (occurrence: None)
  Receive Date: 20110627
  Receipt Date: 20110617
  Transmission Date: 20111010
  Serious: Yes (Other)
  Sender: FDA-Public Use
  Company Number: US-ASTRAZENECA-2011SE37174

PATIENT
  Age: 76 Year
  Sex: Female

DRUGS (5)
  1. OMEPRAZOLE [Suspect]
  2. VITAMIN TAB [Concomitant]
  3. NEXIUM [Suspect]
     Route: 048
  4. ATACAND [Suspect]
     Route: 048
  5. FOLIC ACID [Concomitant]

REACTIONS (2)
  - DRUG INEFFECTIVE [None]
  - ROAD TRAFFIC ACCIDENT [None]
